FAERS Safety Report 15403406 (Version 1)
Quarter: 2018Q3

REPORT INFORMATION
  Report Type: Spontaneous
  Country: GB (occurrence: GB)
  Receive Date: 20180919
  Receipt Date: 20180919
  Transmission Date: 20181010
  Serious: Yes (Other)
  Sender: FDA-Public Use
  Company Number: GB-TEVA-2018-GB-956294

PATIENT
  Age: 45 Year
  Sex: Female
  Weight: 80.28 kg

DRUGS (3)
  1. DULOXETINE. [Suspect]
     Active Substance: DULOXETINE
     Indication: POST-TRAUMATIC STRESS DISORDER
     Route: 048
     Dates: start: 20180801, end: 20180820
  2. DULOXETINE. [Suspect]
     Active Substance: DULOXETINE
     Route: 048
  3. VENLAFAXINE [Concomitant]
     Active Substance: VENLAFAXINE HYDROCHLORIDE
     Route: 065

REACTIONS (4)
  - Seizure [Not Recovered/Not Resolved]
  - Sedation complication [Unknown]
  - Pyrexia [Recovering/Resolving]
  - Muscle spasms [Unknown]

NARRATIVE: CASE EVENT DATE: 20180807
